FAERS Safety Report 7788026-1 (Version None)
Quarter: 2011Q3

REPORT INFORMATION
  Report Type: 
  Country: None (occurrence: None)
  Receive Date: 20110927
  Receipt Date: 20110912
  Transmission Date: 20111222
  Serious: Yes (Disabling)
  Sender: FDA-Public Use
  Company Number: DSM-2011-00630

PATIENT
  Age: 74 Year
  Sex: Female
  Weight: 75 kg

DRUGS (10)
  1. ZOLPIDEM (ZOLPIDEM) (ZOLPIDEM) [Concomitant]
  2. EURELIX (PIRETANIDE) (PIRETANIDE) [Concomitant]
  3. PROPOFAN (CAFFEINE, PARACETAMOL, DEXTROPROPOXYPHENE) (CAFFEINE, PARACE [Concomitant]
  4. OSSOPAN (COLLAGEN-HYDROXYAPATIT-COMPLEX) (COLLAGEN-HYDROXYAPATIT-COMPL [Concomitant]
  5. AXELER (OLMESARTAN MEDOXOMIL, AMLODIPINE BESILATE) (TABLET) (OLMESARTA [Suspect]
     Indication: HYPERTENSION
     Dosage: 20/5MG, ORAL
     Route: 048
     Dates: start: 20090601, end: 20101001
  6. LAROXYL (AMITRIPTYLINE HYDROCHLORIDE) (AMITRIPTYLINE HYDROCHLORIDE) [Concomitant]
  7. TETRAZEPAM (TETRAZEPAM) (TETRAZEPAM) [Concomitant]
  8. ESBERIVEN FORT (RUTOSIDE, MELILOTUS OFFICINALIS) (RUTOSIDE, MELILOTUS [Concomitant]
  9. VASTAREL LM (TRIMETAZIDINE) (TRIMETAZIDINE) [Concomitant]
  10. VOLTARENE (DICLOFENAC SODIUM) (DICLOFENAC SODIUM) [Concomitant]

REACTIONS (56)
  - GENERAL PHYSICAL HEALTH DETERIORATION [None]
  - ASTHENIA [None]
  - DYSPNOEA [None]
  - URINARY TRACT INFECTION [None]
  - DYSGEUSIA [None]
  - IMPAIRED DRIVING ABILITY [None]
  - DIZZINESS [None]
  - FATIGUE [None]
  - CONSTIPATION [None]
  - CRYING [None]
  - AMNESIA [None]
  - FEELING COLD [None]
  - NERVOUS SYSTEM DISORDER [None]
  - MENTAL DISORDER [None]
  - DECREASED APPETITE [None]
  - HYPOTENSION [None]
  - CHILLS [None]
  - TINNITUS [None]
  - PRURITUS [None]
  - MONOPLEGIA [None]
  - DEAFNESS TRANSITORY [None]
  - DIZZINESS POSTURAL [None]
  - ANGINA PECTORIS [None]
  - RHINITIS [None]
  - BONE PAIN [None]
  - CONTUSION [None]
  - DEPRESSION [None]
  - HYPERHIDROSIS [None]
  - ALOPECIA [None]
  - PURPURA [None]
  - MALAISE [None]
  - ACTIVITIES OF DAILY LIVING IMPAIRED [None]
  - MUSCLE SPASMS [None]
  - PAIN IN EXTREMITY [None]
  - ARTHRALGIA [None]
  - YELLOW SKIN [None]
  - FALL [None]
  - AGGRESSION [None]
  - WEIGHT DECREASED [None]
  - HEADACHE [None]
  - NAUSEA [None]
  - DYSPEPSIA [None]
  - DRY MOUTH [None]
  - BACK PAIN [None]
  - VISUAL IMPAIRMENT [None]
  - DERMATITIS ALLERGIC [None]
  - IRRITABILITY [None]
  - PARAESTHESIA [None]
  - PALPITATIONS [None]
  - COUGH [None]
  - ABDOMINAL PAIN [None]
  - MICTURITION URGENCY [None]
  - UNEVALUABLE EVENT [None]
  - ONYCHOCLASIS [None]
  - CYSTITIS [None]
  - HOT FLUSH [None]
